FAERS Safety Report 5140983-8 (Version None)
Quarter: 2006Q4

REPORT INFORMATION
  Report Type: 
  Country: None (occurrence: None)
  Receive Date: 20061027
  Receipt Date: 20061027
  Transmission Date: 20070319
  Serious: No
  Sender: FDA-Public Use
  Company Number: None

PATIENT
  Sex: Female
  Weight: 63.5036 kg

DRUGS (1)
  1. ADVIL [Suspect]
     Indication: TOOTHACHE
     Dosage: ONE TO TWO PER DAY PO
     Route: 048
     Dates: start: 20041015, end: 20041130

REACTIONS (13)
  - CATARACT [None]
  - COLOUR BLINDNESS [None]
  - DERMATITIS CONTACT [None]
  - ERYTHEMA [None]
  - FATIGUE [None]
  - FLUID RETENTION [None]
  - MYALGIA [None]
  - PHOTOSENSITIVITY REACTION [None]
  - RASH [None]
  - SOMNOLENCE [None]
  - THINKING ABNORMAL [None]
  - VISION BLURRED [None]
  - VISUAL DISTURBANCE [None]
